FAERS Safety Report 10427284 (Version 11)
Quarter: 2025Q3

REPORT INFORMATION
  Report Type: Report from Study
  Country: JP (occurrence: JP)
  Receive Date: 20140903
  Receipt Date: 20250809
  Transmission Date: 20251020
  Serious: Yes (Death, Life-Threatening, Hospitalization, Other)
  Sender: ALEXION PHARMACEUTICALS
  Company Number: JP-ALXN-B1404053

PATIENT
  Age: 83 Year
  Sex: Male

DRUGS (7)
  1. SOLIRIS [Suspect]
     Active Substance: ECULIZUMAB
     Indication: Paroxysmal nocturnal haemoglobinuria
     Dosage: 600 MG, QW
     Dates: start: 20111107, end: 20111107
  2. SOLIRIS [Suspect]
     Active Substance: ECULIZUMAB
     Dosage: 900 MG, Q2W
     Dates: start: 20111205, end: 20141103
  3. PREDNISOLONE [Concomitant]
     Active Substance: PREDNISOLONE
     Dosage: 30 MG, DAILY
     Route: 065
     Dates: start: 20130903
  4. PREDNISOLONE [Concomitant]
     Active Substance: PREDNISOLONE
     Dosage: 25 MG, DAILY
     Route: 065
     Dates: start: 20141011
  5. PREDNISOLONE [Concomitant]
     Active Substance: PREDNISOLONE
     Dosage: 30 MG, DAILY
     Route: 065
  6. PREDNISOLONE [Concomitant]
     Active Substance: PREDNISOLONE
     Dosage: 20 MG, DAILY
     Route: 065
     Dates: start: 20141013, end: 20141109
  7. IMURAN [Concomitant]
     Active Substance: AZATHIOPRINE
     Dosage: 25 MG, QD
     Route: 065
     Dates: start: 20141013, end: 20141109

REACTIONS (7)
  - Colitis ulcerative [Fatal]
  - Gastroenteritis aeromonas [Fatal]
  - Colon cancer [Not Recovered/Not Resolved]
  - Bacterial sepsis [Fatal]
  - Cytomegalovirus infection [Fatal]
  - Haemolysis [Unknown]
  - Septic shock [Fatal]

NARRATIVE: CASE EVENT DATE: 20130723
